FAERS Safety Report 4405661-9 (Version None)
Quarter: 2004Q3

REPORT INFORMATION
  Report Type: 
  Country: None (occurrence: None)
  Receive Date: 20040723
  Receipt Date: 20031106
  Transmission Date: 20050211
  Serious: No
  Sender: FDA-Public Use
  Company Number: US-GLAXOSMITHKLINE-A0433271A

PATIENT
  Age: 72 Year
  Sex: Female

DRUGS (5)
  1. AVANDIA [Suspect]
     Dosage: 8MG PER DAY
     Route: 048
  2. LOTREL [Concomitant]
  3. GLUCOPHAGE [Concomitant]
  4. GLUCOSAMINE [Concomitant]
  5. ANTIVERT [Concomitant]

REACTIONS (4)
  - DIZZINESS [None]
  - OEDEMA PERIPHERAL [None]
  - SENSATION OF BLOCK IN EAR [None]
  - TINNITUS [None]
